FAERS Safety Report 22179798 (Version 2)
Quarter: 2023Q2

REPORT INFORMATION
  Report Type: Spontaneous
  Country: US (occurrence: US)
  Receive Date: 20230406
  Receipt Date: 20230602
  Transmission Date: 20230721
  Serious: No
  Sender: FDA-Public Use
  Company Number: US-Vifor (International) Inc.-VIT-2023-01934

PATIENT
  Age: 53 Year
  Sex: Female
  Weight: 83.536 kg

DRUGS (13)
  1. MIRCERA [Suspect]
     Active Substance: METHOXY POLYETHYLENE GLYCOL-EPOETIN BETA
     Indication: Nephrogenic anaemia
     Dosage: DOSE NUMBER:01, DOSE CATEGORY DOSE 1 (1ST DOSE GIVEN)
     Route: 058
     Dates: start: 20230221, end: 20230222
  2. TYLENOL [Concomitant]
     Active Substance: ACETAMINOPHEN
     Indication: Pain
     Dosage: 2 TABLETS BY MOUTH EVERY SIX HOURS. DO NOT TAKE MORE THAN 3000 MG IN 24 HOUR PERIOD
     Route: 048
  3. NORVASC [Concomitant]
     Active Substance: AMLODIPINE BESYLATE
     Dosage: MAY CONTINUE UP TO AND INCLUDING THE DAY OF SURGERY
     Route: 048
  4. TUMS ULTRA [Concomitant]
     Active Substance: CALCIUM CARBONATE
     Dosage: CHEW 1.5 TABLETS AND SWALLOW THREE TIMES DAILY WITH MEALS (400 MG CALCIUM). HOLD DAY OF SURGERY
     Route: 048
  5. ZYRTEC [Concomitant]
     Active Substance: CETIRIZINE HYDROCHLORIDE
     Dosage: MAY CONTINUE UP TO AND INCLUDING THE DAY OF SURGERY
     Route: 048
  6. PEPCID [Concomitant]
     Active Substance: FAMOTIDINE
     Dosage: TAKE 2.5 ML (20 MG) BY MOUTH (CHEWABLE) MAY CONTINUE UP TO AND INCLUDING THE DAY OF SURGERY.
     Route: 048
  7. FLONASE [Concomitant]
     Active Substance: FLUTICASONE PROPIONATE
     Dosage: MAY CONTINUE UP TO AND INCLUDING THE DAY OF SURGERY
     Route: 045
  8. LISINOPRIL [Concomitant]
     Active Substance: LISINOPRIL
     Route: 048
  9. SINGULAIR [Concomitant]
     Active Substance: MONTELUKAST SODIUM
     Dosage: MAY CONTINUE UP TO AND INCLUDING THE DAY OF SURGERY, EVERY EVENING
     Route: 048
  10. CELLCEPT [Concomitant]
     Active Substance: MYCOPHENOLATE MOFETIL
     Dosage: 1.3 ML (260 MG) BY MOUTH
     Route: 048
  11. DELTASONE [Concomitant]
     Active Substance: PREDNISONE
     Dosage: MAY CONTINUE UP TO AND INCLUDING THE DAY OF SURGERY
     Route: 048
  12. PROGRAF [Concomitant]
     Active Substance: TACROLIMUS
     Dosage: 3 CAPSULES (3 MG) BY MOUTH EVERY MORNING AND 2 CAPSULES (2 MG) EVERY EVENING.
     Route: 048
  13. SODIUM BICARBONATE [Concomitant]
     Active Substance: SODIUM BICARBONATE
     Dosage: HOLD DAY OF SURGERY.
     Route: 048

REACTIONS (5)
  - Drug hypersensitivity [Recovered/Resolved]
  - Rash [Recovered/Resolved]
  - Urticaria [Recovered/Resolved]
  - Pruritus [Recovered/Resolved]
  - Skin swelling [Recovered/Resolved]

NARRATIVE: CASE EVENT DATE: 20230221
